FAERS Safety Report 10429287 (Version 1)
Quarter: 2014Q3

REPORT INFORMATION
  Report Type: Spontaneous
  Country: US (occurrence: None)
  Receive Date: 20140725
  Receipt Date: 20140725
  Transmission Date: 20150326
  Serious: No
  Sender: FDA-Public Use
  Company Number: AP356-00913-SPO-US

PATIENT
  Age: 76 Year
  Sex: Male
  Weight: 101 kg

DRUGS (5)
  1. INSULIN [Concomitant]
     Active Substance: INSULIN NOS
  2. VYTORIN (INEGY) [Concomitant]
  3. GLYBURIDE (GLIBENCLAMIDE) [Concomitant]
     Active Substance: GLYBURIDE
  4. BELVIQ [Suspect]
     Active Substance: LORCASERIN HYDROCHLORIDE
     Indication: WEIGHT DECREASED
     Route: 048
     Dates: start: 201306, end: 201310
  5. TENORMIN [Concomitant]
     Active Substance: ATENOLOL

REACTIONS (1)
  - Dry mouth [None]

NARRATIVE: CASE EVENT DATE: 201306
